FAERS Safety Report 15854161 (Version 1)
Quarter: 2018Q4

REPORT INFORMATION
  Report Type: Spontaneous
  Country: US (occurrence: US)
  Receive Date: 20181226
  Receipt Date: 20181226
  Transmission Date: 20190205
  Serious: No
  Sender: FDA-Public Use
  Company Number: None

PATIENT
  Age: 64 Year
  Sex: Female

DRUGS (1)
  1. DOXORUBICIN INJ 2MG/ML [Suspect]
     Active Substance: DOXORUBICIN
     Indication: BREAST CANCER
     Dosage: ?          OTHER FREQUENCY:UNKNOWN;?
     Route: 042
     Dates: start: 201812

REACTIONS (5)
  - Cough [None]
  - Stomatitis [None]
  - Decreased appetite [None]
  - Pulmonary congestion [None]
  - Fatigue [None]

NARRATIVE: CASE EVENT DATE: 20181226
